FAERS Safety Report 22103895 (Version 1)
Quarter: 2023Q1

REPORT INFORMATION
  Report Type: Spontaneous
  Country: CN (occurrence: CN)
  Receive Date: 20230316
  Receipt Date: 20230316
  Transmission Date: 20230418
  Serious: Yes (Other)
  Sender: FDA-Public Use
  Company Number: CN-AMGEN-CHNSP2023043203

PATIENT
  Age: 33 Year
  Sex: Female

DRUGS (5)
  1. BLINCYTO [Suspect]
     Active Substance: BLINATUMOMAB
     Indication: Acute lymphocytic leukaemia
     Dosage: 28 MICROGRAM, QD
     Route: 042
     Dates: start: 20230208
  2. BLINCYTO [Suspect]
     Active Substance: BLINATUMOMAB
     Dosage: 7 MICROGRAM, QD
     Route: 042
     Dates: start: 202302
  3. BLINCYTO [Suspect]
     Active Substance: BLINATUMOMAB
     Dosage: 28 MICROGRAM, QD
     Route: 042
     Dates: start: 20230213
  4. BLINCYTO [Suspect]
     Active Substance: BLINATUMOMAB
     Dosage: 14 MICROGRAM, QD
     Route: 042
     Dates: start: 20230214, end: 20230216
  5. PIPERACILLIN SODIUM\TAZOBACTAM SODIUM [Concomitant]
     Active Substance: PIPERACILLIN SODIUM\TAZOBACTAM SODIUM
     Indication: Pneumonia
     Dosage: 4.5 MILLIGRAM, TID
     Route: 042
     Dates: start: 20230209, end: 20230211

REACTIONS (1)
  - Hyperpyrexia [Recovering/Resolving]

NARRATIVE: CASE EVENT DATE: 20230209
